FAERS Safety Report 13663186 (Version 2)
Quarter: 2017Q3

REPORT INFORMATION
  Report Type: Report from Study
  Country: FR (occurrence: FR)
  Receive Date: 20170619
  Receipt Date: 20170905
  Transmission Date: 20171127
  Serious: Yes (Other)
  Sender: FDA-Public Use
  Company Number: FR-CLOVIS-2017-0338-0068

PATIENT
  Age: 28 Year
  Sex: Female
  Weight: 57 kg

DRUGS (6)
  1. DECAPEPTYL [Concomitant]
     Active Substance: TRIPTORELIN
     Indication: MENOPAUSE
     Dates: start: 201706
  2. LEVOTHYROXINE. [Concomitant]
     Active Substance: LEVOTHYROXINE
  3. ESCITALOPRAM [Concomitant]
     Active Substance: ESCITALOPRAM OXALATE
  4. IBUPROFEN. [Concomitant]
     Active Substance: IBUPROFEN
  5. ALPRAZOLAM. [Concomitant]
     Active Substance: ALPRAZOLAM
  6. CO-338 [Suspect]
     Active Substance: RUCAPARIB
     Indication: BREAST CANCER METASTATIC
     Route: 048
     Dates: start: 20170405

REACTIONS (1)
  - Herpes zoster [Recovered/Resolved]

NARRATIVE: CASE EVENT DATE: 20170606
